FAERS Safety Report 11291360 (Version 3)
Quarter: 2015Q3

REPORT INFORMATION
  Report Type: Report from Study
  Country: US (occurrence: US)
  Receive Date: 20150722
  Receipt Date: 20150802
  Transmission Date: 20151125
  Serious: Yes (Other)
  Sender: FDA-Public Use
  Company Number: US-ABBVIE-15K-163-1428029-00

PATIENT
  Age: 53 Year
  Sex: Female
  Weight: 133.02 kg

DRUGS (1)
  1. HUMIRA [Suspect]
     Active Substance: ADALIMUMAB
     Indication: RHEUMATOID ARTHRITIS
     Route: 065
     Dates: start: 2015, end: 201506

REACTIONS (11)
  - Peripheral swelling [Not Recovered/Not Resolved]
  - Peripheral venous disease [Unknown]
  - Fluid retention [Recovering/Resolving]
  - Weight increased [Recovering/Resolving]
  - Varicose vein [Unknown]
  - Skin ulcer [Unknown]
  - Pleural effusion [Recovering/Resolving]
  - Rheumatoid arthritis [Not Recovered/Not Resolved]
  - Peripheral venous disease [Recovering/Resolving]
  - Peripheral venous disease [Recovering/Resolving]
  - Cough [Recovering/Resolving]

NARRATIVE: CASE EVENT DATE: 2015
